FAERS Safety Report 15930121 (Version 1)
Quarter: 2019Q1

REPORT INFORMATION
  Report Type: Report from Study
  Country: US (occurrence: US)
  Receive Date: 20190206
  Receipt Date: 20190206
  Transmission Date: 20190417
  Serious: Yes (Other)
  Sender: FDA-Public Use
  Company Number: US-GILEAD-2019-0388482

PATIENT
  Age: 47 Year
  Sex: Male

DRUGS (4)
  1. ADCIRCA [Concomitant]
     Active Substance: TADALAFIL
  2. ORENITRAM [Suspect]
     Active Substance: TREPROSTINIL
     Indication: PULMONARY ARTERIAL HYPERTENSION
     Dosage: 1.625 MG, BID
     Route: 048
     Dates: start: 20181024
  3. AMBRISENTAN [Suspect]
     Active Substance: AMBRISENTAN
     Indication: PULMONARY ARTERIAL HYPERTENSION
     Dosage: UNK
     Route: 065
  4. OXYGEN. [Concomitant]
     Active Substance: OXYGEN

REACTIONS (12)
  - Peripheral swelling [Unknown]
  - Electrocardiogram abnormal [Unknown]
  - Sleep apnoea syndrome [Unknown]
  - Cardiovascular disorder [Unknown]
  - Foot operation [Unknown]
  - Weight increased [Unknown]
  - Abdominal discomfort [Unknown]
  - Nausea [Unknown]
  - Palpitations [Unknown]
  - Diarrhoea [Unknown]
  - Insomnia [Unknown]
  - Drug ineffective [Not Recovered/Not Resolved]

NARRATIVE: CASE EVENT DATE: 2018
